FAERS Safety Report 19310326 (Version 6)
Quarter: 2021Q3

REPORT INFORMATION
  Report Type: Report from Study
  Country: CA (occurrence: CA)
  Receive Date: 20210526
  Receipt Date: 20210811
  Transmission Date: 20211014
  Serious: Yes (Other)
  Sender: FDA-Public Use
  Company Number: CA-OTSUKA-2021_017440

PATIENT
  Sex: Male

DRUGS (2)
  1. CEDAZURIDINE AND DECITABINE [Suspect]
     Active Substance: CEDAZURIDINE\DECITABINE
     Dosage: 1 DF (TAB) OD ON DAYS 1, 3 + 5 OF A 28 DAY CYCLE
     Route: 065
  2. CEDAZURIDINE AND DECITABINE [Suspect]
     Active Substance: CEDAZURIDINE\DECITABINE
     Indication: MYELODYSPLASTIC SYNDROME
     Dosage: (35 MG DECITABINE AND 100 MG CEDAZURIDINE)
     Route: 065
     Dates: start: 20210201

REACTIONS (8)
  - Packed red blood cell transfusion [Unknown]
  - Stomatitis [Unknown]
  - Tongue biting [Unknown]
  - Disease progression [Unknown]
  - Drug ineffective [Unknown]
  - Product use issue [Unknown]
  - Platelet transfusion [Unknown]
  - Epistaxis [Unknown]

NARRATIVE: CASE EVENT DATE: 2021
